FAERS Safety Report 18065627 (Version 6)
Quarter: 2021Q2

REPORT INFORMATION
  Report Type: Report from Study
  Country: KR (occurrence: KR)
  Receive Date: 20200724
  Receipt Date: 20210510
  Transmission Date: 20210717
  Serious: Yes (Hospitalization)
  Sender: FDA-Public Use
  Company Number: NVSC2020KR157723

PATIENT
  Age: 52 Year
  Sex: Male
  Weight: 57 kg

DRUGS (42)
  1. PENNEL [Concomitant]
     Dosage: 1 CAP, BID
     Route: 048
     Dates: start: 20200713
  2. MACPERAN [Concomitant]
     Active Substance: METOCLOPRAMIDE HYDROCHLORIDE
     Indication: NAUSEA
     Dosage: 10 MG, QD
     Route: 042
     Dates: start: 20200611, end: 20200612
  3. ALPELISIB [Suspect]
     Active Substance: ALPELISIB
     Dosage: 350 MG, UNK
     Route: 048
     Dates: start: 20200625, end: 20200709
  4. WINUF PERI [Concomitant]
     Active Substance: AMINO ACIDS\DEXTROSE\ELECTROLYTES NOS\SOYBEAN OIL\VITAMINS
     Indication: DECREASED APPETITE
     Dosage: 1085 ML, QD
     Route: 042
     Dates: start: 20200601, end: 20200622
  5. PENIRAMIN [Concomitant]
     Indication: PREMEDICATION
     Dosage: 4 MG, QD
     Route: 042
     Dates: start: 20200603, end: 20200612
  6. LASIX [Concomitant]
     Active Substance: FUROSEMIDE
     Indication: DYSPNOEA
     Dosage: 20 MG, PRN
     Route: 042
     Dates: start: 20200616, end: 20200623
  7. PENNEL [Concomitant]
     Indication: PROPHYLAXIS
     Dosage: 1 CAP,BID
     Route: 048
     Dates: start: 20200618, end: 20200618
  8. ENCOVER [Concomitant]
     Indication: DECREASED APPETITE
     Dosage: 200 ML, PRN
     Route: 048
     Dates: start: 20200613
  9. PHOSTEN [Concomitant]
     Indication: HYPOPHOSPHATAEMIA
     Dosage: 20 ML, BID
     Route: 042
     Dates: start: 20200614, end: 20200614
  10. HEPA MERZ [Concomitant]
     Indication: ASPARTATE AMINOTRANSFERASE INCREASED
  11. LIDOCAINE. [Concomitant]
     Active Substance: LIDOCAINE
     Indication: PREMEDICATION
     Dosage: 20 ML, ONCE /SINGLE
     Route: 042
     Dates: start: 20200608, end: 20200608
  12. ATROPINE. [Concomitant]
     Active Substance: ATROPINE
     Indication: PREMEDICATION
     Dosage: 0.5 MG, ONCE/SINGLE
     Route: 030
     Dates: start: 20200608, end: 20200608
  13. LEGALON [Concomitant]
     Active Substance: DIETARY SUPPLEMENT\HERBALS\MILK THISTLE
     Indication: ALANINE AMINOTRANSFERASE INCREASED
     Dosage: 140, 1 CAP, BID
     Route: 048
     Dates: start: 20200608, end: 20200611
  14. LEGALON [Concomitant]
     Active Substance: DIETARY SUPPLEMENT\HERBALS\MILK THISTLE
     Indication: PROPHYLAXIS
     Dosage: 140, 1 CAP, BID
     Route: 048
     Dates: start: 20200621
  15. MEGESTROL [Concomitant]
     Active Substance: MEGESTROL
     Indication: DECREASED APPETITE
     Dosage: 10 ML, QD
     Route: 048
     Dates: start: 20200623
  16. POTASSIUM CHLORIDE. [Concomitant]
     Active Substance: POTASSIUM CHLORIDE
     Dosage: 100 ML, BID
     Route: 042
     Dates: start: 20200612
  17. LIDOCAINE. [Concomitant]
     Active Substance: LIDOCAINE
     Indication: PREMEDICATION
     Dosage: 20 ML, ONCE /SINGLE
     Route: 042
     Dates: start: 20200616, end: 20200616
  18. HUMULIN R [Concomitant]
     Active Substance: INSULIN HUMAN
     Indication: HYPERGLYCAEMIA
     Dosage: 10 UNIT, QD
     Route: 058
     Dates: start: 20200602, end: 20200603
  19. HUMULIN R [Concomitant]
     Active Substance: INSULIN HUMAN
     Dosage: 20 UNIT, QD
     Route: 058
     Dates: start: 20200605, end: 20200622
  20. PENIRAMIN [Concomitant]
     Dosage: 4 MG, TID
     Route: 042
     Dates: start: 20200613, end: 20200623
  21. TYLENOL [Concomitant]
     Active Substance: ACETAMINOPHEN
     Indication: PYREXIA
     Dosage: 1300 MG, ONCE
     Route: 048
     Dates: start: 20200611, end: 20200611
  22. POTASSIUM CHLORIDE. [Concomitant]
     Active Substance: POTASSIUM CHLORIDE
     Dosage: 40 ML, QD
     Route: 042
     Dates: start: 20200616, end: 20200616
  23. TROPHERINE [Concomitant]
     Indication: PREMEDICATION
     Dosage: 0.8 ML, ONCE/SINGLE
     Route: 047
     Dates: start: 20200622, end: 20200622
  24. TOPISOL MILK LOTION [Concomitant]
     Indication: RASH
     Dosage: 50 G, 1 TUB/ PRN
     Route: 061
     Dates: start: 20200622
  25. LIDOCAINE. [Concomitant]
     Active Substance: LIDOCAINE
     Indication: PREMEDICATION
     Dosage: 20 ML, ONCE /SINGLE
     Route: 042
     Dates: start: 20200615, end: 20200615
  26. XANAX [Concomitant]
     Active Substance: ALPRAZOLAM
     Indication: INSOMNIA
     Dosage: 0.25 MG, QD
     Route: 048
     Dates: start: 20200515, end: 20200531
  27. XANAX [Concomitant]
     Active Substance: ALPRAZOLAM
     Dosage: 0.25 MG, QD
     Route: 048
     Dates: start: 20200629
  28. HUMULIN R [Concomitant]
     Active Substance: INSULIN HUMAN
     Dosage: 15 UNIT, QD
     Route: 058
     Dates: start: 20200604, end: 20200604
  29. PENNEL [Concomitant]
     Indication: ASPARTATE AMINOTRANSFERASE INCREASED
     Dosage: 1 CAP,BID
     Route: 048
     Dates: start: 20200621
  30. HEPA MERZ [Concomitant]
     Indication: ALANINE AMINOTRANSFERASE INCREASED
     Dosage: 500 MG, BID
     Route: 042
     Dates: start: 20200618
  31. BASPO [Concomitant]
     Indication: PREMEDICATION
     Dosage: 1 TUB/ ONCE
     Route: 047
     Dates: start: 20200622, end: 20200622
  32. TRIAXONE [Concomitant]
     Indication: INFECTION PROPHYLAXIS
     Dosage: 2 G, QD
     Route: 042
     Dates: start: 20200601, end: 20200602
  33. TRAMADOL. [Concomitant]
     Active Substance: TRAMADOL
     Indication: HEADACHE
     Dosage: 50 MG, ONCE/SINGLE
     Route: 042
     Dates: start: 20200622, end: 20200623
  34. PENNEL [Concomitant]
     Indication: ALANINE AMINOTRANSFERASE INCREASED
     Dosage: 1 CAP, TID
     Route: 048
     Dates: start: 20200608, end: 20200611
  35. LEGALON [Concomitant]
     Active Substance: DIETARY SUPPLEMENT\HERBALS\MILK THISTLE
     Indication: ASPARTATE AMINOTRANSFERASE INCREASED
     Dosage: 140, 1 CAP, BID
     Route: 048
     Dates: start: 20200618, end: 20200618
  36. LEGALON [Concomitant]
     Active Substance: DIETARY SUPPLEMENT\HERBALS\MILK THISTLE
     Dosage: 140, 1 CAP, BID
     Route: 048
     Dates: start: 20200713
  37. ALBUMIN [Concomitant]
     Active Substance: ALBUMIN HUMAN
     Indication: HYPOALBUMINAEMIA
     Dosage: 100 ML
     Route: 042
     Dates: start: 20200614, end: 20200617
  38. TANTUM [Concomitant]
     Active Substance: BENZYDAMINE HYDROCHLORIDE
     Indication: STOMATITIS
     Dosage: 1 BOT, PRN
     Route: 048
     Dates: start: 20200616
  39. ALPELISIB [Suspect]
     Active Substance: ALPELISIB
     Indication: SQUAMOUS CELL CARCINOMA OF HEAD AND NECK
     Dosage: 350 MG, UNK
     Route: 048
     Dates: start: 20200515, end: 20200531
  40. MUCOSTA [Concomitant]
     Active Substance: REBAMIPIDE
     Indication: PROPHYLAXIS
     Dosage: 100 MG, TID
     Route: 048
     Dates: start: 20200527, end: 20200611
  41. TAMIPOOL [Concomitant]
     Active Substance: VITAMINS
     Indication: SUPPLEMENTATION THERAPY
     Dosage: 1 VIAL, QD
     Route: 042
     Dates: start: 20200601, end: 20200622
  42. POTASSIUM CHLORIDE. [Concomitant]
     Active Substance: POTASSIUM CHLORIDE
     Indication: HYPOKALAEMIA
     Dosage: 100 ML, PRN
     Route: 065
     Dates: start: 20200611, end: 20200618

REACTIONS (2)
  - Pneumonia [Recovered/Resolved]
  - Pneumonia [Recovered/Resolved]

NARRATIVE: CASE EVENT DATE: 20200526
